FAERS Safety Report 7627825-3 (Version None)
Quarter: 2011Q3

REPORT INFORMATION
  Report Type: 
  Country: None (occurrence: None)
  Receive Date: 20110721
  Receipt Date: 20110711
  Transmission Date: 20111222
  Serious: Yes (Other)
  Sender: FDA-Public Use
  Company Number: CA-AMGEN-CANSP2011007776

PATIENT
  Age: 55 Year
  Sex: Male
  Weight: 94 kg

DRUGS (5)
  1. ENBREL [Suspect]
     Indication: RHEUMATOID ARTHRITIS
     Dosage: 50 MG, QWK
     Route: 058
     Dates: start: 20100402, end: 20100908
  2. LEFLUNOMIDE [Suspect]
     Indication: RHEUMATOID ARTHRITIS
     Dosage: 20 MG, QD
     Route: 048
  3. CELEBREX [Concomitant]
     Dosage: 20 MG, QD
     Route: 048
  4. METHOTREXATE [Suspect]
     Indication: RHEUMATOID ARTHRITIS
     Dosage: 20 MG, QWK
     Route: 048
  5. ABATACEPT [Concomitant]

REACTIONS (4)
  - HERPES SIMPLEX OPHTHALMIC [None]
  - CORNEAL SCAR [None]
  - BLINDNESS UNILATERAL [None]
  - VISION BLURRED [None]
